FAERS Safety Report 9191369 (Version 3)
Quarter: 2014Q1

REPORT INFORMATION
  Report Type: Spontaneous
  Country: US (occurrence: US)
  Receive Date: 20130326
  Receipt Date: 20140117
  Transmission Date: 20141002
  Serious: Yes (Hospitalization, Other)
  Sender: FDA-Public Use
  Company Number: US-009507513-1303USA011197

PATIENT
  Sex: Female
  Weight: 51.7 kg

DRUGS (4)
  1. FOSAMAX [Suspect]
     Indication: OSTEOPENIA
     Dosage: 70 MG, QW
     Route: 048
     Dates: start: 20011001, end: 2011
  2. FOSAMAX [Suspect]
     Indication: OSTEOPOROSIS
  3. ALENDRONATE SODIUM [Suspect]
     Indication: OSTEOPENIA
     Dosage: 70 MG, QW
     Route: 048
     Dates: start: 200803, end: 201103
  4. HORMONES (UNSPECIFIED) [Concomitant]
     Dosage: UNK
     Dates: start: 1995, end: 2011

REACTIONS (54)
  - Jaw fracture [Recovering/Resolving]
  - External fixation of fracture [Unknown]
  - Debridement [Unknown]
  - Biopsy bone [Unknown]
  - Antibiotic level below therapeutic [Unknown]
  - Mastectomy [Unknown]
  - Surgery [Unknown]
  - Osteomyelitis [Unknown]
  - Osteonecrosis of jaw [Unknown]
  - Tooth extraction [Unknown]
  - Adverse event [Unknown]
  - Adverse event [Unknown]
  - Depression [Unknown]
  - Cervical radiculopathy [Unknown]
  - Spinal osteoarthritis [Unknown]
  - Facet joint syndrome [Unknown]
  - Lumbar radiculopathy [Unknown]
  - Chills [Unknown]
  - Intervertebral disc degeneration [Unknown]
  - Decreased appetite [Unknown]
  - Dermatitis bullous [Unknown]
  - Thirst [Unknown]
  - Dry mouth [Unknown]
  - Anxiety [Unknown]
  - Colitis [Not Recovered/Not Resolved]
  - Bronchitis chronic [Not Recovered/Not Resolved]
  - Benign breast neoplasm [Unknown]
  - Ear infection fungal [Unknown]
  - Chronic obstructive pulmonary disease [Not Recovered/Not Resolved]
  - Tooth abscess [Unknown]
  - Gastroenteritis viral [Unknown]
  - Anaemia [Unknown]
  - Immunosuppression [Unknown]
  - Increased tendency to bruise [Unknown]
  - Jaw disorder [Unknown]
  - Dental caries [Unknown]
  - Vascular calcification [Unknown]
  - Cerebral calcification [Unknown]
  - Weight decreased [Unknown]
  - Night sweats [Unknown]
  - Dry skin [Unknown]
  - Tonsillar cyst [Unknown]
  - Irritable bowel syndrome [Unknown]
  - Panic attack [Unknown]
  - Appendicectomy [Unknown]
  - Ovarian cystectomy [Unknown]
  - Cerumen impaction [Unknown]
  - Ovarian cyst [Unknown]
  - Nasal congestion [Unknown]
  - Intervertebral disc degeneration [Unknown]
  - VIIth nerve paralysis [Unknown]
  - Drug ineffective [Unknown]
  - Vomiting [Unknown]
  - Nausea [Unknown]
